FAERS Safety Report 8232041-0 (Version None)
Quarter: 2012Q1

REPORT INFORMATION
  Report Type: 
  Country: None (occurrence: None)
  Receive Date: 20120321
  Receipt Date: 20120313
  Transmission Date: 20120608
  Serious: Yes (Congenital Anomaly, Other)
  Sender: FDA-Public Use
  Company Number: GER/GER/12/0023458

PATIENT
  Sex: Male
  Weight: 3.6 kg

DRUGS (3)
  1. LAMOTRIGINE [Suspect]
     Indication: PRODUCT USED FOR UNKNOWN INDICATION
     Dosage: 700 MG, 1 IN 1 D, TRANSPLACENTAL
     Route: 064
     Dates: start: 20091111, end: 20100811
  2. FOLSAURE (FOLIC ACID) [Concomitant]
  3. VIMPAT [Suspect]
     Indication: PRODUCT USED FOR UNKNOWN INDICATION
     Dosage: 200 MG, 1 IN 1 D, TRANSPLACENTAL
     Route: 064
     Dates: start: 20091111, end: 20100811

REACTIONS (5)
  - HYPERBILIRUBINAEMIA NEONATAL [None]
  - ATRIAL SEPTAL DEFECT [None]
  - COARCTATION OF THE AORTA [None]
  - BRADYCARDIA NEONATAL [None]
  - MATERNAL DRUGS AFFECTING FOETUS [None]
